FAERS Safety Report 4917864-5 (Version None)
Quarter: 2006Q1

REPORT INFORMATION
  Report Type: 
  Country: None (occurrence: None)
  Receive Date: 20060214
  Receipt Date: 20060203
  Transmission Date: 20060701
  Serious: Yes (Other)
  Sender: FDA-Public Use
  Company Number: 200610531GDS

PATIENT
  Age: 43 Year
  Sex: Female

DRUGS (4)
  1. CIPRO [Suspect]
     Dosage: 1000 MG, TOTAL DAILY, INTRAVENOUS
     Route: 042
  2. AMITRIPTYLINE HCL [Concomitant]
  3. CELEBREX [Concomitant]
  4. IBUPROFEN [Concomitant]

REACTIONS (5)
  - BLOOD CREATINE PHOSPHOKINASE INCREASED [None]
  - ERYTHEMA [None]
  - FATIGUE [None]
  - HYPERAESTHESIA [None]
  - MYALGIA [None]
